FAERS Safety Report 25535209 (Version 2)
Quarter: 2025Q3

REPORT INFORMATION
  Report Type: Spontaneous
  Country: US (occurrence: US)
  Receive Date: 20250709
  Receipt Date: 20250808
  Transmission Date: 20251020
  Serious: Yes (Death, Other)
  Sender: SUNOVION
  Company Number: US-SMPA-2025SPA008172

PATIENT
  Age: 77 Year
  Sex: Male

DRUGS (10)
  1. ORGOVYX [Suspect]
     Active Substance: RELUGOLIX
     Indication: Prostate cancer
     Dosage: 120 MG, QD
     Route: 048
  2. CARBIDOPA AND LEVODOPA [Concomitant]
     Active Substance: CARBIDOPA\LEVODOPA
  3. ENTRESTO [Concomitant]
     Active Substance: SACUBITRIL\VALSARTAN
  4. FINASTERIDE [Concomitant]
     Active Substance: FINASTERIDE
  5. HIPREX [Concomitant]
     Active Substance: METHENAMINE HIPPURATE
  6. MELATONIN [Concomitant]
     Active Substance: MELATONIN
  7. METOPROLOL SUCCINATE [Concomitant]
     Active Substance: METOPROLOL SUCCINATE
  8. OMEPRAZOLE [Concomitant]
     Active Substance: OMEPRAZOLE
  9. SINEMET CR [Concomitant]
     Active Substance: CARBIDOPA\LEVODOPA
  10. TAMSULOSIN HYDROCHLORIDE [Concomitant]
     Active Substance: TAMSULOSIN HYDROCHLORIDE

REACTIONS (2)
  - Death [Fatal]
  - Neoplasm [Unknown]

NARRATIVE: CASE EVENT DATE: 20250625
